FAERS Safety Report 8507432-0 (Version None)
Quarter: 2012Q3

REPORT INFORMATION
  Report Type: 
  Country: None (occurrence: None)
  Receive Date: 20120712
  Receipt Date: 20120521
  Transmission Date: 20120928
  Serious: Yes (Other)
  Sender: FDA-Public Use
  Company Number: PHEH2012US005859

PATIENT
  Sex: Male
  Weight: 3.175 kg

DRUGS (11)
  1. ONDANSETRON [Concomitant]
  2. AFINITOR [Suspect]
     Dosage: 10 MG, DAILY
     Route: 048
     Dates: start: 20110801
  3. TAMSULOSIN HCL [Concomitant]
     Dosage: 0.4 MG, UNK
  4. FENTANYL [Concomitant]
  5. AFINITOR [Suspect]
     Dosage: 5 MG
     Route: 048
     Dates: start: 20110822
  6. AMYLASE/LIPASE/PROTEASE [Concomitant]
  7. OXYCODONE HCL [Concomitant]
  8. PROMETHAZINE [Concomitant]
     Dosage: 25 MG, UNK
  9. SANDOSTATIN LAR [Suspect]
     Dosage: 30 MG, UNK
  10. TRAZODONE HYDROCHLORIDE [Concomitant]
     Dosage: 50 MG, UNK
  11. MAGIC MOUTHWASH [Concomitant]

REACTIONS (5)
  - ABDOMINAL DISCOMFORT [None]
  - PANCYTOPENIA [None]
  - DYSPHAGIA [None]
  - FATIGUE [None]
  - WHITE BLOOD CELL COUNT DECREASED [None]
